FAERS Safety Report 12750800 (Version 3)
Quarter: 2017Q2

REPORT INFORMATION
  Report Type: Spontaneous
  Country: US (occurrence: US)
  Receive Date: 20160915
  Receipt Date: 20170407
  Transmission Date: 20170830
  Serious: Yes (Disabling, Other)
  Sender: FDA-Public Use
  Company Number: US-ASTELLAS-2016US020041

PATIENT
  Age: 60 Year
  Sex: Male

DRUGS (1)
  1. XTANDI [Suspect]
     Active Substance: ENZALUTAMIDE
     Indication: PROSTATE CANCER
     Route: 048
     Dates: start: 20160421

REACTIONS (5)
  - Hot flush [Unknown]
  - Joint injury [Unknown]
  - Gout [Unknown]
  - Gout [Unknown]
  - Fall [Unknown]

NARRATIVE: CASE EVENT DATE: 201607
